APPROVED DRUG PRODUCT: HYDROXYZINE HYDROCHLORIDE
Active Ingredient: HYDROXYZINE HYDROCHLORIDE
Strength: 25MG
Dosage Form/Route: TABLET;ORAL
Application: A087603 | Product #001
Applicant: STRIDES PHARMA INTERNATIONAL AG
Approved: Jan 22, 1982 | RLD: No | RS: No | Type: DISCN